FAERS Safety Report 7895731 (Version 2)
Quarter: 2024Q2

REPORT INFORMATION
  Report Type: Spontaneous
  Country: NL (occurrence: NL)
  Receive Date: 20110412
  Receipt Date: 20240410
  Transmission Date: 20240716
  Serious: Yes (Death, Other)
  Sender: FDA-Public Use
  Company Number: NL-ELI_LILLY_AND_COMPANY-NL201104000813

PATIENT
  Age: 53 Year
  Sex: Female

DRUGS (1)
  1. GEMCITABINE HYDROCHLORIDE [Suspect]
     Active Substance: GEMCITABINE HYDROCHLORIDE
     Indication: Breast cancer metastatic
     Dosage: 1250 MG/M2, DAY 1 AND 8 IN EACH THREE WEEK CYCLE
     Route: 065

REACTIONS (3)
  - Thrombotic microangiopathy [Fatal]
  - Hypercalcaemia [Unknown]
  - Hyperbilirubinaemia [Unknown]
